FAERS Safety Report 23087676 (Version 1)
Quarter: 2023Q4

REPORT INFORMATION
  Report Type: Spontaneous
  Country: US (occurrence: US)
  Receive Date: 20231020
  Receipt Date: 20231020
  Transmission Date: 20240110
  Serious: No
  Sender: FDA-Public Use
  Company Number: US-AMGEN-USASP2023185332

PATIENT
  Age: 75 Year
  Sex: Female

DRUGS (1)
  1. TAVNEOS [Suspect]
     Active Substance: AVACOPAN
     Indication: Granulomatosis with polyangiitis
     Dosage: 20 MILLIGRAM, BID
     Route: 048
     Dates: start: 20231014

REACTIONS (1)
  - Product communication issue [Unknown]

NARRATIVE: CASE EVENT DATE: 20231014
